FAERS Safety Report 9718419 (Version 1)
Quarter: 2013Q4

REPORT INFORMATION
  Report Type: Not Available
  Country: US (occurrence: US)
  Receive Date: 20131125
  Receipt Date: 20131125
  Transmission Date: 20140711
  Serious: No
  Sender: FDA-Public Use
  Company Number: US-VIVUS-2013V1000607

PATIENT
  Age: 49 Year
  Sex: Female
  Weight: 133.02 kg

DRUGS (5)
  1. QSYMIA 7.5MG/46MG [Suspect]
     Indication: WEIGHT DECREASED
     Route: 048
     Dates: start: 201305, end: 201306
  2. QSYMIA 3.75MG/23MG [Suspect]
     Indication: WEIGHT DECREASED
     Route: 048
     Dates: start: 201305, end: 201305
  3. LEVOTHYROXINE [Concomitant]
     Indication: HYPOTHYROIDISM
     Dosage: STARTED 15 YEARS AGO
     Route: 048
     Dates: start: 1998
  4. ESCITALOPRAM [Concomitant]
     Indication: ANXIETY
     Dosage: STARTED 2 MONTHS AGO
     Route: 048
     Dates: start: 2013
  5. XANAX [Concomitant]
     Indication: ANXIETY
     Dosage: STARTED 5 YEARS AGO
     Route: 048
     Dates: start: 2008

REACTIONS (4)
  - Abdominal distension [Recovered/Resolved]
  - Ageusia [Recovered/Resolved]
  - Dyspepsia [Recovered/Resolved]
  - Malaise [Recovered/Resolved]
